FAERS Safety Report 8376240-6 (Version None)
Quarter: 2012Q2

REPORT INFORMATION
  Report Type: 
  Country: None (occurrence: None)
  Receive Date: 20120518
  Receipt Date: 20120426
  Transmission Date: 20120825
  Serious: Yes (Other)
  Sender: FDA-Public Use
  Company Number: 1270613

PATIENT
  Age: 57 Year
  Sex: Male
  Weight: 110.45 kg

DRUGS (2)
  1. (FLUID) [Suspect]
  2. CORLOPAM [Suspect]
     Indication: BLOOD PRESSURE
     Dosage: INTRAVENOUS DRIP
     Route: 041
     Dates: start: 20120422, end: 20120425

REACTIONS (1)
  - FLUID OVERLOAD [None]
